FAERS Safety Report 10070072 (Version 1)
Quarter: 2014Q2

REPORT INFORMATION
  Report Type: Spontaneous
  Country: US (occurrence: None)
  Receive Date: 20140409
  Receipt Date: 20140409
  Transmission Date: 20141212
  Serious: Yes (Other)
  Sender: FDA-Public Use
  Company Number: None

PATIENT
  Age: 4 Day
  Sex: Female
  Weight: 3.19 kg

DRUGS (3)
  1. PHENOBARBITAL [Suspect]
     Indication: CONVULSION NEONATAL
     Dosage: LOADING DOSE
     Route: 042
     Dates: start: 20140308, end: 20140312
  2. AMPICILLIN [Concomitant]
  3. CEFOTAXIM [Concomitant]

REACTIONS (1)
  - Haematochezia [None]
